FAERS Safety Report 4600505-4 (Version None)
Quarter: 2005Q1

REPORT INFORMATION
  Report Type: 
  Country: None (occurrence: None)
  Receive Date: 20050304
  Receipt Date: 20050221
  Transmission Date: 20050727
  Serious: Yes (Other)
  Sender: FDA-Public Use
  Company Number: 2005034052

PATIENT
  Age: 78 Year
  Sex: Male
  Weight: 72.5755 kg

DRUGS (4)
  1. DETROL LA [Suspect]
     Indication: NOCTURIA
     Dosage: 1 IN 1  D, ORAL
     Route: 048
     Dates: start: 20040101
  2. ALL OTHER THERAPEUTIC PRODUCTS (ALL OTHER THERAPEUTIC PRODUCTS) [Concomitant]
  3. ATORVASTATIN (ATORVASTATIN) [Concomitant]
  4. TERAZOSIN (TERAZOSIN) [Concomitant]

REACTIONS (2)
  - CEREBROVASCULAR ACCIDENT [None]
  - DRY MOUTH [None]
